FAERS Safety Report 17210035 (Version 2)
Quarter: 2020Q1

REPORT INFORMATION
  Report Type: Report from Study
  Country: CA (occurrence: CA)
  Receive Date: 20191227
  Receipt Date: 20200109
  Transmission Date: 20200409
  Serious: Yes (Other)
  Sender: FDA-Public Use
  Company Number: CA-JNJFOC-20191006615

PATIENT
  Age: 23 Year
  Sex: Male
  Weight: 59.93 kg

DRUGS (1)
  1. SIMPONI [Suspect]
     Active Substance: GOLIMUMAB
     Indication: ANKYLOSING SPONDYLITIS
     Dosage: LAST INJECTION GIVEN 06-SEP-2019.
     Route: 058

REACTIONS (4)
  - Abdominal pain [Recovered/Resolved]
  - Laryngitis [Not Recovered/Not Resolved]
  - Inappropriate schedule of product administration [Unknown]
  - Haematemesis [Recovered/Resolved]

NARRATIVE: CASE EVENT DATE: 2019
